FAERS Safety Report 25114932 (Version 2)
Quarter: 2025Q2

REPORT INFORMATION
  Report Type: Spontaneous
  Country: GB (occurrence: GB)
  Receive Date: 20250324
  Receipt Date: 20250417
  Transmission Date: 20250717
  Serious: Yes (Hospitalization, Other)
  Sender: BRISTOL MYERS SQUIBB
  Company Number: GB-BRISTOL-MYERS SQUIBB COMPANY-2025-042726

PATIENT
  Age: 62 Year
  Sex: Male

DRUGS (5)
  1. APIXABAN [Suspect]
     Active Substance: APIXABAN
     Indication: Product used for unknown indication
  2. AVELUMAB [Suspect]
     Active Substance: AVELUMAB
     Indication: Bladder cancer stage IV
     Route: 042
     Dates: start: 20240125, end: 20250220
  3. CISPLATIN [Suspect]
     Active Substance: CISPLATIN
     Indication: Bladder cancer stage IV
     Dates: start: 20230720, end: 20231130
  4. GEMCITABINE HYDROCHLORIDE [Suspect]
     Active Substance: GEMCITABINE HYDROCHLORIDE
     Indication: Bladder cancer stage IV
     Dates: start: 20230720, end: 20231207
  5. DOXYCYCLINE [Concomitant]
     Active Substance: DOXYCYCLINE
     Indication: Product used for unknown indication

REACTIONS (3)
  - Haematuria [Recovered/Resolved]
  - Anaemia [Unknown]
  - Transfusion-related circulatory overload [Unknown]

NARRATIVE: CASE EVENT DATE: 20250211
